FAERS Safety Report 9663983 (Version 2)
Quarter: 2013Q4

REPORT INFORMATION
  Report Type: Spontaneous
  Country: DE (occurrence: DE)
  Receive Date: 20131101
  Receipt Date: 20131101
  Transmission Date: 20140711
  Serious: Yes (Other)
  Sender: FDA-Public Use
  Company Number: DE-TEVA-419319GER

PATIENT
  Age: 51 Year
  Sex: Male

DRUGS (1)
  1. CLINDAMYCIN-RATIOPHARM 600 MG FILMTABLETTEN [Suspect]
     Indication: TOOTH INFECTION
     Dosage: 1800 MILLIGRAM DAILY;
     Route: 048
     Dates: start: 20130630, end: 20130711

REACTIONS (7)
  - Pseudomembranous colitis [Recovered/Resolved]
  - Rhabdomyolysis [Recovered/Resolved]
  - Rash generalised [Recovered/Resolved]
  - Leukopenia [Recovered/Resolved]
  - Neutropenia [Recovered/Resolved]
  - General physical health deterioration [Recovered/Resolved]
  - Pruritus [Recovered/Resolved]
